FAERS Safety Report 7410787-1 (Version None)
Quarter: 2011Q1

REPORT INFORMATION
  Report Type: 
  Country: None (occurrence: None)
  Receive Date: 20110302
  Receipt Date: 20100630
  Transmission Date: 20110831
  Serious: Yes (Death, Hospitalization)
  Sender: FDA-Public Use
  Company Number: 163-21880-10030224

PATIENT
  Age: 94 Year
  Sex: Male

DRUGS (11)
  1. OMEPRAZOLE [Concomitant]
  2. PAROXETINE HCL [Concomitant]
  3. DOXYCYCLINE (DOXYCYCLINE) [Concomitant]
  4. MULTIVITAMIN [Concomitant]
  5. METOPROLOL (METOPROLOL) [Concomitant]
  6. REVLIMID [Suspect]
     Indication: MYELODYSPLASTIC SYNDROME
     Dosage: 2.5 MG, 1 IN 2 D, PO
     Route: 048
     Dates: start: 20091120, end: 20100213
  7. FUROSEMIDE [Concomitant]
  8. METOLAZONE [Concomitant]
  9. POTASSIUM CHLORIDE [Concomitant]
  10. DOCUSATE (DOCUSATE) [Concomitant]
  11. LEVOTHYROXINE (LEVOTHYROXINE) [Concomitant]

REACTIONS (3)
  - RENAL FAILURE CHRONIC [None]
  - PNEUMONIA [None]
  - CARDIAC FAILURE CONGESTIVE [None]
